FAERS Safety Report 4604968-X (Version None)
Quarter: 2005Q1

REPORT INFORMATION
  Report Type: 
  Country: None (occurrence: None)
  Receive Date: 20050308
  Receipt Date: 20050308
  Transmission Date: 20050727
  Serious: Yes (Disabling, Other)
  Sender: FDA-Public Use
  Company Number: None

PATIENT
  Age: 26 Year
  Sex: Female
  Weight: 58.514 kg

DRUGS (3)
  1. TUBERSOL [Suspect]
     Indication: INFLAMMATION
     Dosage: .5 ML ONCE IM
     Route: 030
     Dates: start: 20030808, end: 20030307
  2. TUBERSOL [Suspect]
     Indication: MASS
     Dosage: .5 ML ONCE IM
     Route: 030
     Dates: start: 20030808, end: 20030307
  3. TUBERSOL [Suspect]
     Indication: NECROSIS
     Dosage: .5 ML ONCE IM
     Route: 030
     Dates: start: 20030808, end: 20030307

REACTIONS (5)
  - INFLAMMATION [None]
  - MASS [None]
  - MEDICATION ERROR [None]
  - SKIN NECROSIS [None]
  - SPINAL DEFORMITY [None]
